FAERS Safety Report 17495716 (Version 1)
Quarter: 2020Q1

REPORT INFORMATION
  Report Type: Spontaneous
  Country: CA (occurrence: CA)
  Receive Date: 20200303
  Receipt Date: 20200303
  Transmission Date: 20200409
  Serious: Yes (Other)
  Sender: FDA-Public Use
  Company Number: CA-SAMSUNG BIOEPIS-SB-2020-06923

PATIENT
  Sex: Male
  Weight: 64 kg

DRUGS (2)
  1. IMURAN [Concomitant]
     Active Substance: AZATHIOPRINE
     Indication: PRODUCT USED FOR UNKNOWN INDICATION
     Dosage: UNKNOWN
     Route: 065
  2. INFLIXIMAB [Suspect]
     Active Substance: INFLIXIMAB
     Indication: CROHN^S DISEASE
     Route: 042

REACTIONS (11)
  - Incorrect dose administered [Recovered/Resolved]
  - Abdominal pain lower [Recovered/Resolved]
  - Intestinal obstruction [Recovered/Resolved]
  - Inappropriate schedule of product administration [Recovered/Resolved]
  - Intentional product use issue [Recovered/Resolved]
  - Decreased appetite [Recovered/Resolved]
  - Off label use [Recovered/Resolved]
  - Abdominal mass [Recovered/Resolved]
  - Drug ineffective [Recovered/Resolved]
  - Blood pressure fluctuation [Recovered/Resolved]
  - Ocular hyperaemia [Recovered/Resolved]
